FAERS Safety Report 20817592 (Version 1)
Quarter: 2022Q2

REPORT INFORMATION
  Report Type: Spontaneous
  Country: None (occurrence: US)
  Receive Date: 20220512
  Receipt Date: 20220512
  Transmission Date: 20220720
  Serious: Yes (Other)
  Sender: FDA-Public Use
  Company Number: US-Jiangsu Hengrui Medicine Co., Ltd.-2128717

PATIENT
  Age: 9 Year
  Sex: Male

DRUGS (13)
  1. CYCLOPHOSPHAMIDE [Suspect]
     Active Substance: CYCLOPHOSPHAMIDE
     Indication: Dermatomyositis
  2. METHOTREXATE [Suspect]
     Active Substance: METHOTREXATE
  3. AZATHIOPRINE [Suspect]
     Active Substance: AZATHIOPRINE
  4. PREDNISONE [Concomitant]
     Active Substance: PREDNISONE
  5. MYCOPHENOLATE MOFETIL [Concomitant]
     Active Substance: MYCOPHENOLATE MOFETIL
  6. RITUXIMAB [Concomitant]
     Active Substance: RITUXIMAB
  7. TACROLIMUS [Concomitant]
     Active Substance: TACROLIMUS
  8. ETANERCEPT [Concomitant]
     Active Substance: ETANERCEPT
  9. ABATACEPT [Concomitant]
     Active Substance: ABATACEPT
  10. INFLIXIMAB [Concomitant]
     Active Substance: INFLIXIMAB
  11. METHYLPREDNISOLONE [Concomitant]
     Active Substance: METHYLPREDNISOLONE
  12. IMMUNOGLOBULINS [Concomitant]
  13. HYDROXYCHLOROQUINE [Concomitant]
     Active Substance: HYDROXYCHLOROQUINE

REACTIONS (2)
  - Nodular regenerative hyperplasia [Recovering/Resolving]
  - Product use in unapproved indication [Unknown]
